FAERS Safety Report 20690396 (Version 1)
Quarter: 2022Q2

REPORT INFORMATION
  Report Type: Spontaneous
  Country: US (occurrence: US)
  Receive Date: 20220408
  Receipt Date: 20220408
  Transmission Date: 20220721
  Serious: Yes (Other)
  Sender: FDA-Public Use
  Company Number: US-PFIZER INC-202101090460

PATIENT
  Age: 49 Year
  Sex: Female

DRUGS (1)
  1. EUCRISA [Suspect]
     Active Substance: CRISABOROLE
     Dosage: UNK, 1X/DAY (APPLY 1 A SMALL AMOUNT TO SKIN ONCE A DAY APPLY DAILY FOR MAINTAINANCE)
     Route: 061

REACTIONS (4)
  - Skin burning sensation [Unknown]
  - Thermal burn [Unknown]
  - Drug ineffective [Unknown]
  - Off label use [Unknown]
